FAERS Safety Report 6411922-4 (Version None)
Quarter: 2009Q4

REPORT INFORMATION
  Report Type: 
  Country: None (occurrence: None)
  Receive Date: 20091021
  Receipt Date: 20091009
  Transmission Date: 20100525
  Serious: Yes (Hospitalization)
  Sender: FDA-Public Use
  Company Number: CLOF-1000704

PATIENT
  Age: 17 Year
  Sex: Male
  Weight: 73 kg

DRUGS (15)
  1. CLOFARABINE (CLOFARABINE) SOLUTION FOR INFUSION [Suspect]
     Indication: ACUTE LYMPHOCYTIC LEUKAEMIA
     Dosage: 75 MG, QD, INTRAVENOUS
     Route: 042
     Dates: start: 20090915, end: 20090919
  2. ETOPOSIDE [Suspect]
     Indication: ACUTE LYMPHOCYTIC LEUKAEMIA
     Dosage: 188 MG, QD, INTRAVENOUS
     Route: 042
     Dates: start: 20090915, end: 20090919
  3. CYCLOPHOSPHAMIDE [Suspect]
     Indication: ACUTE LYMPHOCYTIC LEUKAEMIA
     Dosage: 830 MG, QD
     Dates: start: 20090915, end: 20090919
  4. ACLOVIR (ACICLOVIR) [Concomitant]
  5. ALLOPURINOL [Concomitant]
  6. DAPSONE [Concomitant]
  7. FLUCONAZOLE [Concomitant]
  8. GABAPENTIN [Concomitant]
  9. LANOPRAZOLE (LANSOPRAZOLE) [Concomitant]
  10. LORAZEPAM [Concomitant]
  11. METHADONE HCL [Concomitant]
  12. MORPHINE [Concomitant]
  13. ONDANSETRON (ONDSANSETRON) [Concomitant]
  14. PROMETHAZINE [Concomitant]
  15. POLYETHYLENE GLYCOL (MACROGOL) [Concomitant]

REACTIONS (21)
  - ANXIETY [None]
  - BONE PAIN [None]
  - BRAIN ABSCESS [None]
  - BRAIN OEDEMA [None]
  - DECREASED APPETITE [None]
  - FACE OEDEMA [None]
  - FUNGAL INFECTION [None]
  - HAEMATOCRIT DECREASED [None]
  - HEART RATE INCREASED [None]
  - HYPERTENSION [None]
  - HYPOTENSION [None]
  - LYMPHOPENIA [None]
  - MALAISE [None]
  - NAUSEA [None]
  - NEUTROPENIC INFECTION [None]
  - PAIN [None]
  - PAIN IN JAW [None]
  - PYREXIA [None]
  - RESPIRATORY RATE INCREASED [None]
  - STAPHYLOCOCCAL BACTERAEMIA [None]
  - TEMPOROMANDIBULAR JOINT SYNDROME [None]
